FAERS Safety Report 12870302 (Version 1)
Quarter: 2016Q4

REPORT INFORMATION
  Report Type: Spontaneous
  Country: JP (occurrence: JP)
  Receive Date: 20161021
  Receipt Date: 20161021
  Transmission Date: 20170207
  Serious: Yes (Hospitalization, Other)
  Sender: FDA-Public Use
  Company Number: JP-GLAXOSMITHKLINE-JP2016JPN151642

PATIENT
  Age: 83 Year
  Sex: Female

DRUGS (14)
  1. VITAMEDIN [Concomitant]
     Active Substance: CYANOCOBALAMIN\PYRIDOXINE HYDROCHLORIDE\THIAMINE
     Dosage: UNK
  2. VALTREX [Suspect]
     Active Substance: VALACYCLOVIR HYDROCHLORIDE
     Indication: HERPES ZOSTER
     Dosage: 500 MG, QD
     Route: 048
     Dates: start: 20161011, end: 20161012
  3. AMITIZA [Concomitant]
     Active Substance: LUBIPROSTONE
     Dosage: UNK
  4. AZOSEMIDE [Concomitant]
     Active Substance: AZOSEMIDE
     Dosage: UNK
  5. LANDSEN [Concomitant]
     Active Substance: CLONAZEPAM
     Dosage: UNK
  6. CINAL [Concomitant]
     Active Substance: ASCORBIC ACID\CALCIUM PANTOTHENATE
     Dosage: UNK
  7. RENAGEL [Concomitant]
     Active Substance: SEVELAMER HYDROCHLORIDE
     Dosage: UNK
  8. GLACTIV [Concomitant]
     Active Substance: SITAGLIPTIN
     Dosage: UNK
  9. CLARITHROMYCIN. [Concomitant]
     Active Substance: CLARITHROMYCIN
     Dosage: UNK
  10. POLAPREZINC [Concomitant]
     Active Substance: POLAPREZINC
     Dosage: UNK
  11. BAYASPIRIN [Concomitant]
     Active Substance: ASPIRIN
     Dosage: UNK
  12. LANSOPRAZOLE. [Concomitant]
     Active Substance: LANSOPRAZOLE
     Dosage: UNK
  13. PREDNISOLONE. [Concomitant]
     Active Substance: PREDNISOLONE
     Dosage: UNK
  14. AMBROXOL HYDROCHLORIDE [Concomitant]
     Active Substance: AMBROXOL HYDROCHLORIDE
     Dosage: UNK

REACTIONS (4)
  - Altered state of consciousness [Recovering/Resolving]
  - Somnolence [Recovering/Resolving]
  - Toxic encephalopathy [Recovered/Resolved]
  - Dyslalia [Recovering/Resolving]

NARRATIVE: CASE EVENT DATE: 20161013
